FAERS Safety Report 9814304 (Version 1)
Quarter: 2014Q1

REPORT INFORMATION
  Report Type: Report from Study
  Country: US (occurrence: US)
  Receive Date: 20140113
  Receipt Date: 20140113
  Transmission Date: 20141002
  Serious: Yes (Other)
  Sender: FDA-Public Use
  Company Number: US-ABBVIE-14P-163-1186331-00

PATIENT
  Sex: Female
  Weight: 95.34 kg

DRUGS (14)
  1. HUMIRA [Suspect]
     Indication: RHEUMATOID ARTHRITIS
     Dates: start: 2010, end: 201310
  2. HUMIRA [Suspect]
     Indication: RHEUMATOID ARTHRITIS
     Dates: start: 201310
  3. TRIAMTERENE AND HYDROCHLOROTHIAZID [Concomitant]
     Indication: LOCAL SWELLING
  4. TRIAMTERENE AND HYDROCHLOROTHIAZID [Concomitant]
     Indication: JOINT SWELLING
  5. LEVOTHYROXINE [Concomitant]
     Indication: HYPOTHYROIDISM
  6. PLAQUENIL [Concomitant]
     Indication: RHEUMATOID ARTHRITIS
  7. FOLIC ACID [Concomitant]
     Indication: PRODUCT USED FOR UNKNOWN INDICATION
  8. TRAZODONE [Concomitant]
     Indication: INSOMNIA
  9. CITALOPRAM [Concomitant]
     Indication: DEPRESSION
  10. CITALOPRAM [Concomitant]
     Indication: ANXIETY
  11. TUMS [Concomitant]
     Indication: SUPPLEMENTATION THERAPY
  12. VITAMIN D [Concomitant]
     Indication: VITAMIN SUPPLEMENTATION
  13. VITAMIN B [Concomitant]
     Indication: VITAMIN SUPPLEMENTATION
  14. RANITIDINE [Concomitant]
     Indication: GASTROOESOPHAGEAL REFLUX DISEASE

REACTIONS (3)
  - Tendon rupture [Recovered/Resolved]
  - Tendon rupture [Recovered/Resolved]
  - Arthralgia [Not Recovered/Not Resolved]
